FAERS Safety Report 9167655 (Version 2)
Quarter: 2013Q2

REPORT INFORMATION
  Report Type: Spontaneous
  Country: FI (occurrence: None)
  Receive Date: 20130305
  Receipt Date: 20130415
  Transmission Date: 20140414
  Serious: Yes (Hospitalization, Other)
  Sender: FDA-Public Use
  Company Number: AUR-APL-2013-01735

PATIENT
  Sex: Male

DRUGS (6)
  1. SIMVASTATIN [Suspect]
     Indication: PRODUCT USED FOR UNKNOWN INDICATION
  2. LIPITOR [Suspect]
     Indication: PRODUCT USED FOR UNKNOWN INDICATION
  3. SELOKEN ZOC [Suspect]
     Indication: PRODUCT USED FOR UNKNOWN INDICATION
  4. COZAAR COMP [Suspect]
     Indication: PRODUCT USED FOR UNKNOWN INDICATION
  5. ISMOX [Suspect]
     Indication: PRODUCT USED FOR UNKNOWN INDICATION
  6. PRAVACHOL [Suspect]
     Indication: PRODUCT USED FOR UNKNOWN INDICATION

REACTIONS (7)
  - Cough [None]
  - Feeling abnormal [None]
  - Pain in extremity [None]
  - Pain in extremity [None]
  - Heart rate decreased [None]
  - Pain in extremity [None]
  - Back pain [None]
